FAERS Safety Report 18422643 (Version 3)
Quarter: 2020Q4

REPORT INFORMATION
  Report Type: Report from Study
  Country: US (occurrence: US)
  Receive Date: 20201023
  Receipt Date: 20201217
  Transmission Date: 20210114
  Serious: No
  Sender: FDA-Public Use
  Company Number: NVSC2020US282293

PATIENT
  Age: 30 Year
  Sex: Female
  Weight: 77.1 kg

DRUGS (1)
  1. KESIMPTA [Suspect]
     Active Substance: OFATUMUMAB
     Indication: PRODUCT USED FOR UNKNOWN INDICATION
     Dosage: 20 MG, QMO
     Route: 058
     Dates: start: 20201008

REACTIONS (8)
  - Disturbance in attention [Unknown]
  - Somnolence [Unknown]
  - Fatigue [Unknown]
  - Pain in extremity [Unknown]
  - Product dose omission issue [Unknown]
  - Hypoaesthesia [Not Recovered/Not Resolved]
  - Hunger [Unknown]
  - Confusional state [Unknown]

NARRATIVE: CASE EVENT DATE: 20201008
